FAERS Safety Report 9697885 (Version 1)
Quarter: 2013Q4

REPORT INFORMATION
  Report Type: Spontaneous
  Country: US (occurrence: None)
  Receive Date: 20131120
  Receipt Date: 20131120
  Transmission Date: 20140711
  Serious: No
  Sender: FDA-Public Use
  Company Number: None

PATIENT
  Sex: 0

DRUGS (1)
  1. DICLOFENAC 1.5% MIXED WITH LIPODERM [Suspect]

REACTIONS (2)
  - Burkholderia cepacia complex infection [None]
  - Product quality issue [None]
